FAERS Safety Report 4348131-9 (Version None)
Quarter: 2004Q2

REPORT INFORMATION
  Report Type: 
  Country: None (occurrence: None)
  Receive Date: 20040422
  Receipt Date: 20040407
  Transmission Date: 20050107
  Serious: Yes (Other)
  Sender: FDA-Public Use
  Company Number: A-US2004-05704

PATIENT
  Sex: Female

DRUGS (6)
  1. TRACLEER [Suspect]
     Indication: PULMONARY HYPERTENSION
     Dosage: 6.5 MG, BID, ORAL
     Route: 048
  2. DIGOXIN [Concomitant]
  3. NORVASC [Concomitant]
  4. FLONASE [Concomitant]
  5. ALBUTEROL INHALER (SALBUTAMOL) [Concomitant]
  6. NOVOTRIAMZIDE (HYDROCHLOROTHIAZIDE, TRIAMTERENE) [Concomitant]

REACTIONS (1)
  - PLATELET COUNT DECREASED [None]
